FAERS Safety Report 5184452-8 (Version None)
Quarter: 2006Q4

REPORT INFORMATION
  Report Type: 
  Country: None (occurrence: None)
  Receive Date: 20061220
  Receipt Date: 20060406
  Transmission Date: 20070319
  Serious: No
  Sender: FDA-Public Use
  Company Number: US-GLAXOSMITHKLINE-A0601289A

PATIENT
  Sex: Male

DRUGS (2)
  1. NICODERM CQ [Suspect]
     Indication: DRUG USE FOR UNKNOWN INDICATION
  2. COMMIT [Suspect]

REACTIONS (5)
  - APPLICATION SITE ERYTHEMA [None]
  - APPLICATION SITE URTICARIA [None]
  - HYPERSENSITIVITY [None]
  - NICOTINE DEPENDENCE [None]
  - ORAL SOFT TISSUE DISORDER [None]
